FAERS Safety Report 19254993 (Version 5)
Quarter: 2022Q1

REPORT INFORMATION
  Report Type: Spontaneous
  Country: FR (occurrence: FR)
  Receive Date: 20210513
  Receipt Date: 20220310
  Transmission Date: 20220423
  Serious: Yes (Hospitalization)
  Sender: FDA-Public Use
  Company Number: None

PATIENT
  Age: 78 Year
  Sex: Male
  Weight: 50 kg

DRUGS (4)
  1. METHOTREXATE SODIUM [Suspect]
     Active Substance: METHOTREXATE SODIUM
     Indication: Rheumatoid arthritis
     Dosage: 15 MG, DAILY
     Route: 048
     Dates: start: 20210226, end: 20210312
  2. METHOTREXATE SODIUM [Suspect]
     Active Substance: METHOTREXATE SODIUM
     Dosage: 2.5 MG TO 5 MG, DAILY
     Route: 048
     Dates: start: 20210312, end: 20210326
  3. PREDNISONE [Concomitant]
     Active Substance: PREDNISONE
     Dosage: 5 MG, DAILY
     Route: 065
  4. SILODOSIN [Concomitant]
     Active Substance: SILODOSIN
     Dosage: 8 MG, DAILY
     Route: 065

REACTIONS (6)
  - Urinary retention [Not Recovered/Not Resolved]
  - Overdose [Unknown]
  - Product use issue [Recovered/Resolved]
  - Pancytopenia [Recovered/Resolved]
  - Mucosal inflammation [Recovering/Resolving]
  - Abdominal pain lower [Not Recovered/Not Resolved]

NARRATIVE: CASE EVENT DATE: 20210226
